FAERS Safety Report 24389082 (Version 3)
Quarter: 2024Q4

REPORT INFORMATION
  Report Type: Spontaneous
  Country: US (occurrence: US)
  Receive Date: 20241002
  Receipt Date: 20241122
  Transmission Date: 20250114
  Serious: No
  Sender: BLUEPRINT MEDICINES
  Company Number: US-Blueprint Medicines Corporation-4901

PATIENT
  Age: 83 Year
  Sex: Female

DRUGS (2)
  1. AYVAKIT [Suspect]
     Active Substance: AVAPRITINIB
     Indication: Systemic mastocytosis
     Route: 065
     Dates: start: 20240406
  2. AYVAKIT [Suspect]
     Active Substance: AVAPRITINIB
     Route: 065

REACTIONS (12)
  - Balance disorder [Unknown]
  - Diplopia [Unknown]
  - Dizziness [Unknown]
  - Hypotension [Unknown]
  - Fluid intake reduced [Unknown]
  - Drug intolerance [Unknown]
  - Swelling of eyelid [Unknown]
  - Peripheral swelling [Unknown]
  - Tryptase increased [Unknown]
  - Dental caries [Unknown]
  - Eye swelling [Unknown]
  - Taste disorder [Unknown]
